FAERS Safety Report 9914681 (Version 1)
Quarter: 2014Q1

REPORT INFORMATION
  Report Type: Spontaneous
  Country: US (occurrence: US)
  Receive Date: 20140220
  Receipt Date: 20140220
  Transmission Date: 20141002
  Serious: Yes (Other)
  Sender: FDA-Public Use
  Company Number: PHEH2014US003212

PATIENT
  Sex: Male

DRUGS (8)
  1. GLEEVEC [Suspect]
     Indication: CHRONIC MYELOID LEUKAEMIA
     Dosage: 100 MG, TID
     Route: 048
  2. GLEEVEC [Suspect]
     Dosage: UNK UKN, UNK
  3. ALLOPURINOL [Concomitant]
     Dosage: 300 MG, QD
     Route: 048
  4. FOSINOPRIL [Concomitant]
     Dosage: 10 MG, QD
     Route: 048
  5. SIMVASTATIN [Concomitant]
     Dosage: 10 MG, QD
     Route: 048
  6. GABAPENTIN [Concomitant]
     Dosage: 400 MG, BID
     Route: 048
  7. ASA [Concomitant]
     Dosage: 81 MG, UNK
     Route: 048
  8. MULTI-VIT [Concomitant]
     Dosage: UNK UKN, UNK
     Route: 048

REACTIONS (4)
  - Peroneal nerve palsy [Unknown]
  - Neuropathy peripheral [Unknown]
  - Chronic myeloid leukaemia [Unknown]
  - Leukaemia recurrent [Unknown]
